FAERS Safety Report 12439982 (Version 1)
Quarter: 2016Q2

REPORT INFORMATION
  Report Type: Spontaneous
  Country: US (occurrence: US)
  Receive Date: 20160606
  Receipt Date: 20160606
  Transmission Date: 20160815
  Serious: Yes (Other)
  Sender: FDA-Public Use
  Company Number: US-TEVA-663466USA

PATIENT
  Sex: Male

DRUGS (1)
  1. SUCRALFATE. [Suspect]
     Active Substance: SUCRALFATE

REACTIONS (3)
  - Dysphagia [Unknown]
  - Choking [Unknown]
  - Product physical issue [Unknown]
